FAERS Safety Report 10431082 (Version 1)
Quarter: 2014Q3

REPORT INFORMATION
  Report Type: Spontaneous
  Country: FR (occurrence: None)
  Receive Date: 20140902
  Receipt Date: 20140902
  Transmission Date: 20150326
  Serious: Yes (Hospitalization, Other)
  Sender: FDA-Public Use
  Company Number: ADR-2014-01557

PATIENT
  Age: 53 Year
  Sex: Male

DRUGS (6)
  1. PANTOPRAZOLE [Suspect]
     Active Substance: PANTOPRAZOLE SODIUM
  2. LIORESAL [Suspect]
     Active Substance: BACLOFEN
     Indication: ALCOHOLISM
     Dates: end: 20140401
  3. CREON [Suspect]
     Active Substance: PANCRELIPASE AMYLASE\PANCRELIPASE LIPASE\PANCRELIPASE PROTEASE
  4. MOTILIUM [Suspect]
     Active Substance: DOMPERIDONE
  5. VITAMIN B1 [Suspect]
     Active Substance: THIAMINE HYDROCHLORIDE
  6. VITAMIN B6 [Suspect]
     Active Substance: PYRIDOXINE HYDROCHLORIDE

REACTIONS (5)
  - Hypokalaemia [None]
  - Convulsion [None]
  - Treatment noncompliance [None]
  - Hyponatraemia [None]
  - Loss of consciousness [None]

NARRATIVE: CASE EVENT DATE: 20140401
